FAERS Safety Report 5981257-2 (Version None)
Quarter: 2008Q4

REPORT INFORMATION
  Report Type: 
  Country: None (occurrence: None)
  Receive Date: 20081126
  Receipt Date: 20080930
  Transmission Date: 20090506
  Serious: Yes (Hospitalization)
  Sender: FDA-Public Use
  Company Number: 2008BH010452

PATIENT
  Sex: Female

DRUGS (10)
  1. DIANEAL [Suspect]
     Indication: CONGENITAL CYSTIC KIDNEY DISEASE
     Dosage: 14 L;EVERY DAY;IP
     Route: 033
     Dates: end: 20080925
  2. TRANDOLAPRIL [Concomitant]
  3. RENAGEL [Concomitant]
  4. REGLAN [Concomitant]
  5. LIPITOR [Concomitant]
  6. SYNTHROID [Concomitant]
  7. COZAAR [Concomitant]
  8. GENTAMICIN TOPICAL OINTMENT [Concomitant]
  9. POTASSIUM CHLORIDE [Concomitant]
  10. ALLOPURINOL [Concomitant]

REACTIONS (4)
  - NAUSEA [None]
  - PERITONEAL DIALYSIS COMPLICATION [None]
  - PERITONITIS [None]
  - VOMITING [None]
